FAERS Safety Report 8086472-2 (Version None)
Quarter: 2012Q1

REPORT INFORMATION
  Report Type: 
  Country: None (occurrence: None)
  Receive Date: 20120128
  Receipt Date: 20110506
  Transmission Date: 20120608
  Serious: Yes (Other)
  Sender: FDA-Public Use
  Company Number: US-ABBOTT-11P-163-0723965-00

PATIENT
  Sex: Male

DRUGS (7)
  1. HUMIRA [Suspect]
     Indication: RHEUMATOID ARTHRITIS
     Dates: start: 20100907
  2. AZOR [Concomitant]
     Indication: HYPERTENSION
  3. HUMALOG [Concomitant]
     Indication: DIABETES MELLITUS
  4. CRESTOR [Concomitant]
     Indication: HYPERLIPIDAEMIA
  5. TRAMADOL HCL [Concomitant]
     Indication: PAIN
  6. PREDNISONE TAB [Concomitant]
     Indication: INFLAMMATION
  7. TERAZOSIN HCL [Concomitant]
     Indication: HYPERTENSION

REACTIONS (1)
  - LYMPHOMA [None]
